FAERS Safety Report 6294755-1 (Version None)
Quarter: 2009Q3

REPORT INFORMATION
  Report Type: 
  Country: None (occurrence: None)
  Receive Date: 20090731
  Receipt Date: 20090731
  Transmission Date: 20100115
  Serious: Yes (Other)
  Sender: FDA-Public Use
  Company Number: None

PATIENT
  Age: 47 Year
  Sex: Female
  Weight: 90.7194 kg

DRUGS (7)
  1. CRESTOR [Suspect]
     Indication: HYPERCHOLESTEROLAEMIA
     Dosage: 20 MG DAILY PO
     Route: 048
     Dates: start: 20040101, end: 20090630
  2. ZETIA [Concomitant]
  3. NEFAZADONE [Concomitant]
  4. PAXIL [Concomitant]
  5. DETROL LA [Concomitant]
  6. FISH OIL SUPPLEMENT [Concomitant]
  7. VITAMIN TAB [Concomitant]

REACTIONS (5)
  - ARTHRALGIA [None]
  - FATIGUE [None]
  - MUSCLE ATROPHY [None]
  - MUSCULAR WEAKNESS [None]
  - MYALGIA [None]
